FAERS Safety Report 13158449 (Version 1)
Quarter: 2017Q1

REPORT INFORMATION
  Report Type: Spontaneous
  Country: GB (occurrence: GB)
  Receive Date: 20170127
  Receipt Date: 20170127
  Transmission Date: 20170428
  Serious: Yes (Other)
  Sender: FDA-Public Use
  Company Number: GB-SA-2017SA012403

PATIENT
  Age: 28 Year
  Sex: Male

DRUGS (3)
  1. OXALIPLATIN. [Suspect]
     Active Substance: OXALIPLATIN
     Dosage: UNK, CYCLIC (2 CYCLES)
     Route: 042
  2. TOMUDEX [Suspect]
     Active Substance: RALTITREXED
     Dosage: UNK
     Route: 065
  3. OXALIPLATIN. [Suspect]
     Active Substance: OXALIPLATIN
     Dosage: UNK, CYCLIC (2 CYCLES)
     Route: 042

REACTIONS (2)
  - Alanine aminotransferase increased [Unknown]
  - Hepatic infarction [Unknown]
